FAERS Safety Report 17446918 (Version 1)
Quarter: 2020Q1

REPORT INFORMATION
  Report Type: Spontaneous
  Country: US (occurrence: US)
  Receive Date: 20200221
  Receipt Date: 20200221
  Transmission Date: 20200409
  Serious: Yes (Other)
  Sender: FDA-Public Use
  Company Number: US-IGSA-SR10009903

PATIENT
  Age: 61 Year
  Sex: Male

DRUGS (1)
  1. HUMAN NORMAL IMMUNOGLOBULIN (IV) [Suspect]
     Active Substance: HUMAN IMMUNOGLOBULIN G
     Indication: THROMBOCYTOPENIA
     Dosage: 2000 MG/KG, QD
     Route: 042

REACTIONS (5)
  - Hypotension [Unknown]
  - Haemolysis [Unknown]
  - Drug ineffective for unapproved indication [Unknown]
  - Anaemia [Unknown]
  - Dyspnoea [Unknown]
